FAERS Safety Report 15414504 (Version 2)
Quarter: 2018Q3

REPORT INFORMATION
  Report Type: Report from Study
  Country: CA (occurrence: CA)
  Receive Date: 20180921
  Receipt Date: 20180928
  Transmission Date: 20181010
  Serious: Yes (Hospitalization, Other)
  Sender: FDA-Public Use
  Company Number: CA-BRISTOL-MYERS SQUIBB COMPANY-BMS-2018-083773

PATIENT
  Age: 56 Year
  Sex: Male

DRUGS (2)
  1. NIVOLUMAB [Suspect]
     Active Substance: NIVOLUMAB
     Indication: RENAL CELL CARCINOMA
     Dosage: 233 MG, Q2WK
     Route: 042
     Dates: start: 20180827
  2. YERVOY [Suspect]
     Active Substance: IPILIMUMAB
     Indication: RENAL CELL CARCINOMA
     Dosage: 78 MG, Q2WK
     Route: 042
     Dates: start: 20180827

REACTIONS (18)
  - Cough [Unknown]
  - Pyrexia [Unknown]
  - Depression [Unknown]
  - Product use in unapproved indication [Unknown]
  - Anxiety [Unknown]
  - Dyspnoea [Unknown]
  - Fatigue [Unknown]
  - Dry mouth [Unknown]
  - Pain [Unknown]
  - Somnolence [Unknown]
  - Pneumonia [Not Recovered/Not Resolved]
  - Decreased appetite [Unknown]
  - Chromaturia [Unknown]
  - Constipation [Unknown]
  - Dyspepsia [Unknown]
  - Blood glucose increased [Not Recovered/Not Resolved]
  - Vomiting [Unknown]
  - Nausea [Unknown]

NARRATIVE: CASE EVENT DATE: 20180906
